FAERS Safety Report 4661492-6 (Version None)
Quarter: 2005Q2

REPORT INFORMATION
  Report Type: 
  Country: None (occurrence: None)
  Receive Date: 20050512
  Receipt Date: 20050512
  Transmission Date: 20051028
  Serious: Yes (Life-Threatening, Hospitalization)
  Sender: FDA-Public Use
  Company Number: None

PATIENT
  Age: 71 Year
  Sex: Female
  Weight: 59.4 kg

DRUGS (8)
  1. AMIODARONE [Suspect]
     Indication: ARRHYTHMIA
     Dosage: INTRAVENOU
     Route: 042
     Dates: start: 20050310, end: 20050311
  2. ZOFRAN [Concomitant]
  3. LEXAPRO [Concomitant]
  4. DITROPAN [Concomitant]
  5. ROCEPHIN [Concomitant]
  6. VANCOMYCIN [Concomitant]
  7. LOPRESSOR [Concomitant]
  8. PROTONIX [Concomitant]

REACTIONS (1)
  - TORSADE DE POINTES [None]
